FAERS Safety Report 4389751-5 (Version None)
Quarter: 2004Q2

REPORT INFORMATION
  Report Type: 
  Country: None (occurrence: None)
  Receive Date: 20040630
  Receipt Date: 20040614
  Transmission Date: 20050107
  Serious: Yes (Hospitalization)
  Sender: FDA-Public Use
  Company Number: 04P-008-0263773-00

PATIENT
  Age: 44 Year
  Sex: Male

DRUGS (4)
  1. WARFARIN SODIUM [Suspect]
     Indication: AORTIC VALVE REPLACEMENT
     Dosage: 150 MG, PER ORAL
     Route: 048
  2. CHLORPROMAZINE [Concomitant]
  3. ALBUTEROL SULFATE [Concomitant]
  4. IPRATROPIUM BROMIDE [Concomitant]

REACTIONS (4)
  - INTENTIONAL OVERDOSE [None]
  - INTERNATIONAL NORMALISED RATIO DECREASED [None]
  - MULTIPLE DRUG OVERDOSE [None]
  - SOMNOLENCE [None]
